FAERS Safety Report 7241889-0 (Version None)
Quarter: 2011Q1

REPORT INFORMATION
  Report Type: 
  Country: None (occurrence: None)
  Receive Date: 20110124
  Receipt Date: 20110119
  Transmission Date: 20110831
  Serious: Yes (Life-Threatening, Hospitalization)
  Sender: FDA-Public Use
  Company Number: DE-ASTRAZENECA-2011SE03556

PATIENT
  Age: 19863 Day
  Sex: Female

DRUGS (2)
  1. SEROQUEL XR [Suspect]
     Route: 048
  2. SEROQUEL XR [Suspect]
     Dosage: TOOK 60-70 TABLETS OF SEROQUEL PROLONG 300 MG OVER THE DAY
     Route: 048
     Dates: start: 20110106

REACTIONS (7)
  - INTENTIONAL OVERDOSE [None]
  - GRAND MAL CONVULSION [None]
  - SUICIDE ATTEMPT [None]
  - RESPIRATORY FAILURE [None]
  - SOMNOLENCE [None]
  - BRONCHITIS [None]
  - HYPOTONIA [None]
